FAERS Safety Report 15514935 (Version 3)
Quarter: 2018Q4

REPORT INFORMATION
  Report Type: Report from Study
  Country: FR (occurrence: FR)
  Receive Date: 20181017
  Receipt Date: 20181109
  Transmission Date: 20190205
  Serious: Yes (Death, Hospitalization)
  Sender: FDA-Public Use
  Company Number: FR-ASTRAZENECA-2018SF35200

PATIENT
  Age: 70 Year
  Sex: Male
  Weight: 100.3 kg

DRUGS (12)
  1. SKENAN [Concomitant]
     Active Substance: MORPHINE SULFATE
     Indication: PAIN
     Route: 048
     Dates: start: 20180913
  2. ATORVASTATIN [Concomitant]
     Active Substance: ATORVASTATIN
     Indication: HYPERCHOLESTEROLAEMIA
     Dosage: 20 MG
     Route: 048
     Dates: start: 1997
  3. BISOPROLOL [Concomitant]
     Active Substance: BISOPROLOL
     Indication: HYPERTENSION
     Dosage: 10 MG
     Route: 065
     Dates: start: 1997
  4. PARACETAMOL [Concomitant]
     Active Substance: ACETAMINOPHEN
     Indication: PAIN
     Dosage: 1.0G AS REQUIRED
     Route: 048
     Dates: start: 20180921
  5. ESOMEPRAZOLE. [Concomitant]
     Active Substance: ESOMEPRAZOLE MAGNESIUM
     Indication: PROPHYLAXIS AGAINST GASTROINTESTINAL ULCER
     Route: 048
     Dates: start: 2015
  6. MACROGOL [Concomitant]
     Active Substance: POLYETHYLENE GLYCOLS
     Indication: CONSTIPATION PROPHYLAXIS
     Dosage: 2 BAGS
     Route: 048
     Dates: start: 20180914
  7. ACTISKENAN [Concomitant]
     Active Substance: MORPHINE SULFATE
     Indication: PAIN
     Dosage: 5.0MG AS REQUIRED
     Route: 048
     Dates: start: 20180913
  8. MEDI4736 [Suspect]
     Active Substance: DURVALUMAB
     Indication: COLORECTAL CANCER
     Route: 042
     Dates: start: 20180913, end: 20180913
  9. PEXIDARTINIB [Suspect]
     Active Substance: PEXIDARTINIB
     Indication: COLORECTAL CANCER
     Route: 048
     Dates: start: 20180913, end: 20181010
  10. LANTUS [Concomitant]
     Active Substance: INSULIN GLARGINE
     Indication: DIABETES MELLITUS
     Dosage: 58 UNITS AS REQUIRED
     Route: 058
  11. RAMIPRIL. [Concomitant]
     Active Substance: RAMIPRIL
     Indication: HYPERTENSION
     Dosage: 5 MG
     Route: 065
     Dates: start: 1997
  12. ESIDREX [Concomitant]
     Active Substance: HYDROCHLOROTHIAZIDE
     Indication: HYPERTENSION
     Route: 065
     Dates: start: 1997

REACTIONS (1)
  - Hypoxia [Fatal]

NARRATIVE: CASE EVENT DATE: 20181011
